FAERS Safety Report 4587185-1 (Version None)
Quarter: 2005Q1

REPORT INFORMATION
  Report Type: 
  Country: None (occurrence: None)
  Receive Date: 20050215
  Receipt Date: 20050207
  Transmission Date: 20050727
  Serious: Yes (Hospitalization)
  Sender: FDA-Public Use
  Company Number: HQ5504325NOV2002

PATIENT
  Age: 47 Year
  Sex: Female

DRUGS (1)
  1. DIMETAPP [Suspect]
     Dosage: ORAL
     Route: 048
     Dates: start: 20000731

REACTIONS (2)
  - BRAIN OEDEMA [None]
  - CEREBRAL HAEMORRHAGE [None]
